FAERS Safety Report 13990354 (Version 1)
Quarter: 2017Q3

REPORT INFORMATION
  Report Type: Spontaneous
  Country: PL (occurrence: PL)
  Receive Date: 20170920
  Receipt Date: 20170920
  Transmission Date: 20171128
  Serious: Yes (Hospitalization)
  Sender: FDA-Public Use
  Company Number: PL-MYLANLABS-2017M1058504

PATIENT
  Age: 31 Year
  Sex: Male

DRUGS (4)
  1. TEMOZOLOMIDE. [Suspect]
     Active Substance: TEMOZOLOMIDE
     Indication: GLIOMA
     Dosage: 75 MG/M 2
     Route: 065
     Dates: end: 201109
  2. GLIADEL [Concomitant]
     Active Substance: CARMUSTINE
     Indication: GLIOMA
     Route: 050
  3. TEMOZOLOMIDE. [Suspect]
     Active Substance: TEMOZOLOMIDE
     Dosage: 150 MG/M2
     Route: 065
  4. TEMOZOLOMIDE. [Suspect]
     Active Substance: TEMOZOLOMIDE
     Dosage: 200 MG/M2
     Route: 065

REACTIONS (10)
  - Neoplasm progression [Recovering/Resolving]
  - Fall [Unknown]
  - Diabetes mellitus [Unknown]
  - Cushingoid [Unknown]
  - Glioma [Recovering/Resolving]
  - Aphasia [Unknown]
  - Hemiparesis [Recovering/Resolving]
  - Partial seizures [Unknown]
  - Myopathy [Unknown]
  - Gait disturbance [Unknown]
